FAERS Safety Report 6519452-6 (Version None)
Quarter: 2009Q4

REPORT INFORMATION
  Report Type: 
  Country: None (occurrence: None)
  Receive Date: 20091228
  Receipt Date: 20091222
  Transmission Date: 20100525
  Serious: Yes (Death)
  Sender: FDA-Public Use
  Company Number: US-CELGENEUS-163-21880-09121840

PATIENT
  Sex: Female

DRUGS (3)
  1. REVLIMID [Suspect]
     Indication: MULTIPLE MYELOMA
     Route: 048
     Dates: start: 20091001, end: 20090101
  2. REVLIMID [Suspect]
     Route: 048
     Dates: start: 20081001
  3. REVLIMID [Suspect]
     Route: 048
     Dates: start: 20090201

REACTIONS (8)
  - AGITATION [None]
  - CONFUSIONAL STATE [None]
  - DEATH [None]
  - DEMENTIA [None]
  - DYSARTHRIA [None]
  - DYSPNOEA [None]
  - IRRITABILITY [None]
  - SPEECH DISORDER [None]
